FAERS Safety Report 13342784 (Version 2)
Quarter: 2017Q2

REPORT INFORMATION
  Report Type: Spontaneous
  Country: US (occurrence: US)
  Receive Date: 20170316
  Receipt Date: 20170413
  Transmission Date: 20170830
  Serious: Yes (Hospitalization, Other)
  Sender: FDA-Public Use
  Company Number: US-SAOL THERAPEUTICS-0700638325

PATIENT
  Sex: Male
  Weight: 72.56 kg

DRUGS (16)
  1. ZOLOFT [Suspect]
     Active Substance: SERTRALINE HYDROCHLORIDE
  2. VITAMIN D [Suspect]
     Active Substance: CHOLECALCIFEROL
  3. IBUPROFEN. [Suspect]
     Active Substance: IBUPROFEN
  4. TESTOSTERONE. [Suspect]
     Active Substance: TESTOSTERONE
     Dosage: 4 MG, \DAY
     Route: 062
  5. BACLOFEN. [Suspect]
     Active Substance: BACLOFEN
     Dosage: 32.62 ?G, \DAY
     Route: 037
  6. SOMA [Suspect]
     Active Substance: CARISOPRODOL
  7. TRAZODONE [Suspect]
     Active Substance: TRAZODONE HYDROCHLORIDE
  8. PRIALT [Suspect]
     Active Substance: ZICONOTIDE ACETATE
     Dosage: 2.060 ?G, \DAY
     Route: 037
  9. DILAUDID [Suspect]
     Active Substance: HYDROMORPHONE HYDROCHLORIDE
  10. GLUCOSAMINE CHONDR COMPLEX [Suspect]
     Active Substance: CHONDROITIN SULFATE (BOVINE)\GLUCOSAMINE HYDROCHLORIDE
  11. VITAMIN B COMPLEX [Suspect]
     Active Substance: CYANOCOBALAMIN\DEXPANTHENOL\NIACINAMIDE\PYRIDOXINE HYDROCHLORIDE\RIBOFLAVIN 5^-PHOSPHATE SODIUM\THIAMINE HYDROCHLORIDE\VITAMIN B COMPLEX
  12. SIMVASTATIN. [Suspect]
     Active Substance: SIMVASTATIN
  13. HYDROMORPHONE [Suspect]
     Active Substance: HYDROMORPHONE
     Dosage: 5.494 ?G, \DAY
     Route: 037
  14. VITAMIN C [Suspect]
     Active Substance: ASCORBIC ACID
  15. MULTIVITAMIN [Suspect]
     Active Substance: VITAMINS
  16. BEE POLLEN [Suspect]
     Active Substance: BEE POLLEN

REACTIONS (4)
  - Off label use [Unknown]
  - Feeling abnormal [Recovered/Resolved]
  - Drug withdrawal syndrome [Recovered/Resolved]
  - Diarrhoea [Unknown]
